FAERS Safety Report 15098492 (Version 1)
Quarter: 2018Q3

REPORT INFORMATION
  Report Type: Report from Study
  Country: US (occurrence: US)
  Receive Date: 20180702
  Receipt Date: 20180702
  Transmission Date: 20181010
  Serious: Yes (Death, Hospitalization, Other)
  Sender: FDA-Public Use
  Company Number: US-ASTRAZENECA-2015SF24248

PATIENT
  Age: 43 Year
  Sex: Male
  Weight: 117.2 kg

DRUGS (7)
  1. ONDANSETRON [Concomitant]
     Active Substance: ONDANSETRON
     Indication: NAUSEA
     Route: 048
  2. LANSOPRAZOLE. [Concomitant]
     Active Substance: LANSOPRAZOLE
     Route: 048
  3. COLACE [Concomitant]
     Active Substance: DOCUSATE SODIUM
     Route: 048
     Dates: start: 20150916
  4. ATIVAN [Concomitant]
     Active Substance: LORAZEPAM
     Route: 048
     Dates: start: 20151014
  5. CYMBALTA [Concomitant]
     Active Substance: DULOXETINE HYDROCHLORIDE
     Route: 048
  6. MEDI4736 [Suspect]
     Active Substance: DURVALUMAB
     Indication: OESOPHAGEAL ADENOCARCINOMA
     Route: 042
     Dates: start: 20151117
  7. OXYCODONE [Concomitant]
     Active Substance: OXYCODONE
     Indication: PAIN
     Dosage: 40 MG EVERY 12 HOURS
     Route: 048
     Dates: start: 20151115

REACTIONS (7)
  - Hypotension [Fatal]
  - Embolism [Fatal]
  - Pneumonia [Fatal]
  - Sinus tachycardia [Fatal]
  - Decreased appetite [Not Recovered/Not Resolved]
  - Pneumonia aspiration [Fatal]
  - Infusion related reaction [Recovered/Resolved]

NARRATIVE: CASE EVENT DATE: 20151201
